FAERS Safety Report 11966096 (Version 1)
Quarter: 2016Q1

REPORT INFORMATION
  Report Type: Spontaneous
  Country: FR (occurrence: FR)
  Receive Date: 20160127
  Receipt Date: 20160127
  Transmission Date: 20160526
  Serious: No
  Sender: FDA-Public Use
  Company Number: FR-JNJFOC-20160119291

PATIENT

DRUGS (1)
  1. DUROGESIC [Suspect]
     Active Substance: FENTANYL
     Indication: PRODUCT USED FOR UNKNOWN INDICATION
     Route: 062

REACTIONS (2)
  - Off label use [Unknown]
  - Drug prescribing error [Unknown]
